FAERS Safety Report 5143394-4 (Version None)
Quarter: 2006Q4

REPORT INFORMATION
  Report Type: 
  Country: None (occurrence: None)
  Receive Date: 20061103
  Receipt Date: 20061020
  Transmission Date: 20070319
  Serious: Yes (Other)
  Sender: FDA-Public Use
  Company Number: PTWYE326224OCT06

PATIENT
  Age: 60 Year
  Sex: Male

DRUGS (3)
  1. ENBREL [Suspect]
     Indication: PSORIATIC ARTHROPATHY
     Route: 058
     Dates: start: 20030101, end: 20060701
  2. NPH INSULIN [Concomitant]
     Indication: DIABETES MELLITUS INSULIN-DEPENDENT
  3. ANTIHYPERTENSIVES [Concomitant]

REACTIONS (1)
  - HYPERGAMMAGLOBULINAEMIA [None]
